FAERS Safety Report 8136684-4 (Version None)
Quarter: 2012Q1

REPORT INFORMATION
  Report Type: 
  Country: None (occurrence: None)
  Receive Date: 20120214
  Receipt Date: 20120210
  Transmission Date: 20120608
  Serious: No
  Sender: FDA-Public Use
  Company Number: US-BAYER-2012-014687

PATIENT
  Sex: Female

DRUGS (4)
  1. MEDICINE [Concomitant]
     Dosage: UNK
     Dates: start: 20120209
  2. ADVIL MIGRAINE LIQUI-GELS [Concomitant]
     Dosage: 1 DF, UNK
     Dates: start: 20120209
  3. EXTRA STRENGTH TYLENOL [Concomitant]
     Dosage: 1 DF, UNK
     Dates: start: 20120209
  4. ALEVE (CAPLET) [Suspect]
     Indication: HEADACHE
     Dosage: 2 DF, UNK
     Route: 048
     Dates: start: 20120209

REACTIONS (1)
  - HEADACHE [None]
